FAERS Safety Report 21952002 (Version 2)
Quarter: 2023Q1

REPORT INFORMATION
  Report Type: Report from Study
  Country: GB (occurrence: None)
  Receive Date: 20230203
  Receipt Date: 20230208
  Transmission Date: 20230417
  Serious: Yes (Death, Hospitalization)
  Sender: FDA-Public Use
  Company Number: 2023A028515

PATIENT
  Age: 14305 Day
  Sex: Female

DRUGS (2)
  1. LYNPARZA [Suspect]
     Active Substance: OLAPARIB
     Indication: Breast cancer metastatic
     Route: 048
     Dates: start: 20220722, end: 20220818
  2. LYNPARZA [Suspect]
     Active Substance: OLAPARIB
     Indication: Breast cancer metastatic
     Dosage: RE-STARTED AT 50 PERCENT DOSE
     Route: 048

REACTIONS (7)
  - Malignant neoplasm progression [Fatal]
  - Mucosal inflammation [Recovered/Resolved]
  - Pyrexia [Unknown]
  - Contusion [Unknown]
  - Fatigue [Recovering/Resolving]
  - Platelet count decreased [Unknown]
  - Neutrophil count decreased [Recovered/Resolved]

NARRATIVE: CASE EVENT DATE: 20220818
